FAERS Safety Report 11111826 (Version 1)
Quarter: 2015Q2

REPORT INFORMATION
  Report Type: Spontaneous
  Country: US (occurrence: None)
  Receive Date: 20150512
  Receipt Date: 20150512
  Transmission Date: 20150821
  Serious: Yes (Hospitalization)
  Sender: FDA-Public Use
  Company Number: None

PATIENT
  Age: 50 Year
  Sex: Female
  Weight: 68.95 kg

DRUGS (14)
  1. ZOCOR [Concomitant]
     Active Substance: SIMVASTATIN
  2. VITAMIN B COMPLEX [Concomitant]
     Active Substance: CYANOCOBALAMIN\DEXPANTHENOL\NIACINAMIDE\PYRIDOXINE HYDROCHLORIDE\RIBOFLAVIN 5^-PHOSPHATE SODIUM\THIAMINE HYDROCHLORIDE\VITAMIN B COMPLEX
  3. CALCIUM [Concomitant]
     Active Substance: CALCIUM
  4. XANAX [Concomitant]
     Active Substance: ALPRAZOLAM
  5. LUTEIN [Concomitant]
     Active Substance: LUTEIN
  6. HORMONES [Concomitant]
     Active Substance: UNSPECIFIED INGREDIENT
  7. ZINC [Concomitant]
     Active Substance: ZINC\ZINC CHLORIDE
  8. PERCOCET [Concomitant]
     Active Substance: ACETAMINOPHEN\OXYCODONE HYDROCHLORIDE
  9. RESTORIL [Concomitant]
     Active Substance: TEMAZEPAM
  10. D3 [Concomitant]
     Active Substance: 25-HYDROXYCHOLECALCIFEROL, 5-TRANS-
  11. LYRICA [Concomitant]
     Active Substance: PREGABALIN
  12. BACLOFIN [Concomitant]
  13. COD LIVER OIL [Concomitant]
     Active Substance: COD LIVER OIL
  14. AMITIZA [Suspect]
     Active Substance: LUBIPROSTONE
     Indication: CONSTIPATION
     Dosage: 24 MCG  7 SHEETS-4 PILLS ON EA. SHEET  TWICE DAILY   BY MOUTH
     Route: 048
     Dates: start: 20140528, end: 20140603

REACTIONS (4)
  - Burning sensation [None]
  - Weight decreased [None]
  - Malaise [None]
  - Back pain [None]

NARRATIVE: CASE EVENT DATE: 20140528
